FAERS Safety Report 4290512-6 (Version None)
Quarter: 2004Q1

REPORT INFORMATION
  Report Type: 
  Country: None (occurrence: None)
  Receive Date: 20040126
  Receipt Date: 20030922
  Transmission Date: 20041129
  Serious: No
  Sender: FDA-Public Use
  Company Number: USA030947960

PATIENT
  Age: 70 Year
  Sex: Female
  Weight: 63 kg

DRUGS (6)
  1. FORTEO [Suspect]
     Indication: OSTEOPOROSIS
     Dates: start: 20030909
  2. POTASSIUM [Concomitant]
  3. XANAX [Concomitant]
  4. SALAGEN [Concomitant]
  5. CORZIDE (BENDROFLUMETHIAZIDE) [Concomitant]
  6. PREVACID [Concomitant]

REACTIONS (3)
  - BACK PAIN [None]
  - FATIGUE [None]
  - NECK PAIN [None]
